FAERS Safety Report 7550105-1 (Version None)
Quarter: 2011Q2

REPORT INFORMATION
  Report Type: 
  Country: None (occurrence: None)
  Receive Date: 20110615
  Receipt Date: 20110610
  Transmission Date: 20111010
  Serious: Yes (Hospitalization)
  Sender: FDA-Public Use
  Company Number: FR-PFIZER INC-2011126854

PATIENT
  Age: 84 Year
  Sex: Female

DRUGS (9)
  1. CORDARONE [Suspect]
     Dosage: 200 MG, 1X/DAY
     Route: 048
  2. X-PREP [Suspect]
     Dosage: 1 DF, SINGLE
     Route: 048
     Dates: start: 20110119, end: 20110119
  3. ZOLOFT [Suspect]
     Dosage: 50 MG, 1X/DAY
     Route: 048
     Dates: end: 20110119
  4. LERCANIDIPINE [Suspect]
     Dosage: 10 MG, 1X/DAY
     Route: 048
     Dates: end: 20110126
  5. SPASFON [Suspect]
     Dosage: 2 DF, 3X/DAY
     Route: 048
  6. LEVOTHYROXINE SODIUM [Suspect]
     Dosage: 25 UG, 1X/DAY
     Route: 048
  7. IMOVANE [Suspect]
     Dosage: 0.5 DF, 1X/DAY
     Route: 048
  8. ACETAMINOPHEN [Suspect]
     Dosage: 1 G, 3X/DAY
     Route: 048
  9. PREVISCAN [Suspect]
     Dosage: 2 DF, 3X/DAY
     Route: 048
     Dates: end: 20110126

REACTIONS (3)
  - HYPONATRAEMIA [None]
  - FEMUR FRACTURE [None]
  - PYELONEPHRITIS [None]
